FAERS Safety Report 8911755 (Version 1)
Quarter: 2012Q4

REPORT INFORMATION
  Report Type: 
  Country: US (occurrence: US)
  Receive Date: 20121116
  Receipt Date: 20121116
  Transmission Date: 20130627
  Serious: Yes (Hospitalization)
  Sender: FDA-Public Use
  Company Number: US-AMGEN-USASP2012073120

PATIENT
  Age: 58 Year
  Sex: Female
  Weight: 97.96 kg

DRUGS (17)
  1. ENBREL [Suspect]
     Indication: PRODUCT USED FOR UNKNOWN INDICATION
     Dosage: UNK
  2. HUMIRA [Concomitant]
     Dosage: 40 mg, qwk
     Route: 058
  3. SULFASALAZINE [Concomitant]
     Dosage: UNK
  4. METHOTREXATE [Concomitant]
     Dosage: 15 mg, qwk
  5. MOBIC [Concomitant]
     Dosage: 7.5 mg, qd
  6. LYRICA [Concomitant]
     Dosage: 75 mg, bid
  7. CALCIUM [Concomitant]
     Dosage: UNK
  8. VITAMIN D /00107901/ [Concomitant]
     Dosage: 50000 UNK, qwk
  9. FLEXERIL                           /00428402/ [Concomitant]
     Dosage: 10 mg, 1tabletUNK
  10. IMITREX                            /01044801/ [Concomitant]
     Dosage: UNK
  11. TYLENOL /00020001/ [Concomitant]
     Dosage: 650 mg, 2 tablets prn, UNK
  12. KEPRA [Concomitant]
     Dosage: 250 mg, qd
  13. MELOXICAM [Concomitant]
     Dosage: 7.5 mg, UNK
  14. EFFEXOR XR [Concomitant]
     Dosage: 150 mg, bid
     Route: 048
  15. CYCLOBENZAPRINE HYDROCHLORIDE [Concomitant]
     Dosage: 10 mg at night prn, UNK
  16. NORCO [Concomitant]
     Dosage: 325 mg-5 mg tablet 1 tab every 8 hrs prn, UNK
  17. ZOLPIDEM TARTRATE [Concomitant]
     Dosage: 10 mg, qd

REACTIONS (23)
  - Encephalitis herpes [Unknown]
  - Seronegative arthritis [Unknown]
  - Osteopenia [Unknown]
  - Arthralgia [Unknown]
  - Pain [Unknown]
  - Musculoskeletal stiffness [Unknown]
  - Depression [Unknown]
  - Fatigue [Unknown]
  - Fall [Unknown]
  - Joint injury [Unknown]
  - Neck pain [Unknown]
  - Joint swelling [Unknown]
  - Muscular weakness [Unknown]
  - Dry eye [Unknown]
  - Photosensitivity reaction [Unknown]
  - Insomnia [Unknown]
  - Dyspepsia [Unknown]
  - Headache [Unknown]
  - Spondyloarthropathy [Unknown]
  - Leukocytosis [Recovered/Resolved]
  - Red blood cell sedimentation rate increased [Unknown]
  - Sinus headache [Unknown]
  - Oral pain [Unknown]
